APPROVED DRUG PRODUCT: LEVO-DROMORAN
Active Ingredient: LEVORPHANOL TARTRATE
Strength: 2MG **Federal Register determination that product was not discontinued or withdrawn for safety or effectiveness reasons**
Dosage Form/Route: TABLET;ORAL
Application: N008720 | Product #001
Applicant: VALEANT PHARMACEUTICALS INTERNATIONAL
Approved: Dec 19, 1991 | RLD: Yes | RS: No | Type: DISCN